FAERS Safety Report 15361886 (Version 1)
Quarter: 2018Q3

REPORT INFORMATION
  Report Type: Spontaneous
  Country: US (occurrence: US)
  Receive Date: 20180831
  Receipt Date: 20180831
  Transmission Date: 20181010
  Serious: Yes (Hospitalization, Disabling, Other)
  Sender: FDA-Public Use
  Company Number: None

PATIENT
  Age: 27 Year
  Sex: Female

DRUGS (11)
  1. ALBUTERAL [Concomitant]
     Active Substance: ALBUTEROL
  2. MELOXACAM [Concomitant]
  3. ZYRTEC [Concomitant]
     Active Substance: CETIRIZINE HYDROCHLORIDE
  4. LAMOTRIGINE 200 MG TABLETS [Suspect]
     Active Substance: LAMOTRIGINE
     Indication: EPILEPSY
     Dosage: ?          QUANTITY:90 TABLET(S);?
     Route: 048
     Dates: start: 20090215, end: 20160701
  5. KEPPRA [Concomitant]
     Active Substance: LEVETIRACETAM
  6. AMBIAN CR [Concomitant]
  7. PROZAC [Concomitant]
     Active Substance: FLUOXETINE HYDROCHLORIDE
  8. APTIUM [Concomitant]
  9. PREMERIN [Concomitant]
  10. ADVAIR HFA [Concomitant]
     Active Substance: FLUTICASONE PROPIONATE\SALMETEROL XINAFOATE
  11. GNC WOMEN^S ULTRA MEGA DAILY [Concomitant]

REACTIONS (2)
  - Endometriosis [None]
  - Ovarian cyst [None]

NARRATIVE: CASE EVENT DATE: 20100325
